FAERS Safety Report 19587175 (Version 1)
Quarter: 2021Q3

REPORT INFORMATION
  Report Type: Spontaneous
  Country: US (occurrence: US)
  Receive Date: 20210720
  Receipt Date: 20210720
  Transmission Date: 20211014
  Serious: Yes (Other)
  Sender: FDA-Public Use
  Company Number: None

PATIENT
  Sex: Female

DRUGS (6)
  1. ANASTROZOLE. [Concomitant]
     Active Substance: ANASTROZOLE
  2. OMPERAZOLE [Concomitant]
     Active Substance: OMEPRAZOLE
  3. VESICARE [Concomitant]
     Active Substance: SOLIFENACIN SUCCINATE
  4. EZETIMBE [Concomitant]
     Active Substance: EZETIMIBE
  5. HAEGARDA [Suspect]
     Active Substance: HUMAN C1-ESTERASE INHIBITOR
     Indication: TYPE IIA HYPERLIPIDAEMIA
     Dosage: ?          OTHER FREQUENCY:EVERY 3 DAYS;?
     Route: 058
     Dates: start: 20210202
  6. SALINE FLUSH [Concomitant]
     Active Substance: SODIUM CHLORIDE

REACTIONS (1)
  - Bone density abnormal [None]
